FAERS Safety Report 8936333 (Version 1)
Quarter: 2012Q4

REPORT INFORMATION
  Report Type: Report from Study
  Country: US (occurrence: US)
  Receive Date: 20121130
  Receipt Date: 20121130
  Transmission Date: 20130627
  Serious: No
  Sender: FDA-Public Use
  Company Number: US-ABBOTT-12P-163-1002452-00

PATIENT
  Sex: Male

DRUGS (4)
  1. ANDROGEL 1.62% [Suspect]
     Indication: BLOOD TESTOSTERONE DECREASED
  2. ANDROGEL 1.62% [Suspect]
     Indication: DEPRESSION
  3. ANDROGEL 1% [Suspect]
     Indication: BLOOD TESTOSTERONE DECREASED
  4. ANDROGEL 1% [Suspect]
     Indication: DEPRESSION

REACTIONS (4)
  - Off label use [Unknown]
  - Wrong drug administered [Unknown]
  - Gynaecomastia [Unknown]
  - Acne [Unknown]
